FAERS Safety Report 5879473-3 (Version None)
Quarter: 2008Q3

REPORT INFORMATION
  Report Type: 
  Country: None (occurrence: None)
  Receive Date: 20080912
  Receipt Date: 20080905
  Transmission Date: 20090109
  Serious: Yes (Death, Hospitalization, Other)
  Sender: FDA-Public Use
  Company Number: JP-ABBOTT-06P-087-0343639-00

PATIENT
  Sex: Male

DRUGS (22)
  1. NORVIR [Suspect]
     Indication: HIV INFECTION
     Route: 048
     Dates: start: 20040528, end: 20071213
  2. ABACAVIR SULFATE [Suspect]
     Indication: HIV INFECTION
     Route: 048
     Dates: start: 20050401, end: 20050613
  3. ABACAVIR SULFATE [Suspect]
     Route: 048
     Dates: start: 20060822, end: 20071213
  4. ATAZANAVIR SULFATE [Suspect]
     Indication: HIV INFECTION
     Route: 048
     Dates: start: 20040528, end: 20071213
  5. TENOFOVIR [Suspect]
     Indication: HIV INFECTION
     Route: 048
     Dates: start: 20050401, end: 20050419
  6. LAMIVUDINE [Suspect]
     Indication: HIV INFECTION
     Route: 048
     Dates: start: 20050420, end: 20050613
  7. LAMIVUDINE [Suspect]
     Route: 048
     Dates: start: 20060822, end: 20071213
  8. ABACAVIR SULFATE/LAMIVUDINE [Suspect]
     Indication: HIV INFECTION
     Route: 048
     Dates: start: 20050614, end: 20060821
  9. CLARITHROMYCIN [Concomitant]
     Indication: OPPORTUNISTIC INFECTION PROPHYLAXIS
     Route: 048
     Dates: start: 20051014, end: 20071213
  10. PREDNISOLONE [Concomitant]
     Indication: NEPHROPATHY
     Route: 048
     Dates: start: 20050815, end: 20050911
  11. PREDNISOLONE [Concomitant]
     Route: 048
     Dates: start: 20050912, end: 20051009
  12. PREDNISOLONE [Concomitant]
     Route: 048
     Dates: start: 20051010, end: 20051106
  13. PREDNISOLONE [Concomitant]
     Route: 048
     Dates: start: 20051107, end: 20051204
  14. PREDNISOLONE [Concomitant]
     Route: 048
     Dates: start: 20051205
  15. INSULIN HUMAN [Concomitant]
     Indication: DIABETES MELLITUS
     Dates: start: 20040114, end: 20060401
  16. INSULIN HUMAN [Concomitant]
     Dates: start: 20060401, end: 20060501
  17. INSULIN HUMAN [Concomitant]
  18. LEVOPROME [Concomitant]
     Indication: SCHIZOPHRENIA
     Route: 048
     Dates: start: 20050720
  19. HALOPERIDOL [Concomitant]
     Indication: SCHIZOPHRENIA
     Route: 048
     Dates: start: 20050720, end: 20051031
  20. HALOPERIDOL [Concomitant]
     Route: 048
     Dates: start: 20051101
  21. BIPERIDEN HYDROCHLORIDE TAB [Concomitant]
     Indication: SCHIZOPHRENIA
     Route: 048
     Dates: start: 20050720
  22. LEVOPROME [Concomitant]
     Indication: DRUG USE FOR UNKNOWN INDICATION
     Dates: start: 20050720

REACTIONS (5)
  - BRAIN HERNIATION [None]
  - DIABETES MELLITUS [None]
  - DIALYSIS [None]
  - RENAL IMPAIRMENT [None]
  - SUBARACHNOID HAEMORRHAGE [None]
